FAERS Safety Report 11193425 (Version 2)
Quarter: 2016Q2

REPORT INFORMATION
  Report Type: Spontaneous
  Country: CN (occurrence: CN)
  Receive Date: 20150616
  Receipt Date: 20160518
  Transmission Date: 20160815
  Serious: Yes (Death)
  Sender: FDA-Public Use
  Company Number: CN-MYLANLABS-2015M1019388

PATIENT
  Age: 47 Year
  Sex: Female
  Weight: 37 kg

DRUGS (16)
  1. FENTANYL. [Interacting]
     Active Substance: FENTANYL
     Indication: POSTOPERATIVE ANALGESIA
     Dosage: 300 MICROG IN A 100 ML SOLUTION IN 24 HOURS AT A RATE OF 2ML/H
     Route: 041
  2. FENTANYL. [Interacting]
     Active Substance: FENTANYL
     Dosage: 150 MICROG
     Route: 065
  3. TRAMADOL. [Concomitant]
     Active Substance: TRAMADOL
     Indication: POSTOPERATIVE ANALGESIA
     Dosage: 500MG IN A 100 ML SOLUTION IN 24 HOURS AT A RATE OF 2ML/H
     Route: 041
  4. CEFOTIAM [Concomitant]
     Active Substance: CEFOTIAM
     Dosage: 2G
     Route: 042
  5. SUCCINYLCHOLINE CHLORIDE. [Concomitant]
     Active Substance: SUCCINYLCHOLINE CHLORIDE
     Indication: INDUCTION OF ANAESTHESIA
     Dosage: 100 MG
     Route: 065
  6. PROPOFOL. [Concomitant]
     Active Substance: PROPOFOL
     Indication: MAINTENANCE OF ANAESTHESIA
     Dosage: 200 MG
     Route: 065
  7. FENTANYL. [Interacting]
     Active Substance: FENTANYL
     Indication: INDUCTION OF ANAESTHESIA
     Dosage: 100 MICROG IN DIVIDED DOSES
     Route: 065
  8. CISATRACURIUM BESILATE [Concomitant]
     Active Substance: CISATRACURIUM BESYLATE
     Indication: MAINTENANCE OF ANAESTHESIA
     Dosage: 8 MG
     Route: 042
  9. ATROPINE. [Concomitant]
     Active Substance: ATROPINE
     Dosage: 0.5 MG
     Route: 065
  10. NEOSTIGMINE [Concomitant]
     Active Substance: NEOSTIGMINE
     Dosage: 1MG
     Route: 065
  11. CLINDAMYCIN [Suspect]
     Active Substance: CLINDAMYCIN\CLINDAMYCIN PHOSPHATE
     Indication: PRODUCT USED FOR UNKNOWN INDICATION
     Dosage: 1.2 G IN 250ML 0.9% SODIUM CHLORIDE SOLUTION FOR ABOUT 30 MINUTES
     Route: 041
  12. ETOMIDATE. [Concomitant]
     Active Substance: ETOMIDATE
     Indication: INDUCTION OF ANAESTHESIA
     Dosage: 20MG
     Route: 065
  13. PANTOPRAZOLE [Concomitant]
     Active Substance: PANTOPRAZOLE SODIUM
     Dosage: 40 MG
     Route: 042
  14. MIDAZOLAM [Concomitant]
     Active Substance: MIDAZOLAM\MIDAZOLAM HYDROCHLORIDE
     Indication: INDUCTION OF ANAESTHESIA
     Dosage: 2MG
     Route: 065
  15. ANESOXYN [Concomitant]
     Active Substance: NITROUS OXIDE\OXYGEN
     Indication: MAINTENANCE OF ANAESTHESIA
     Dosage: 60 - 65% IN OXYGEN
     Route: 065
  16. SEVOFLURANE. [Concomitant]
     Active Substance: SEVOFLURANE
     Indication: MAINTENANCE OF ANAESTHESIA
     Route: 065

REACTIONS (3)
  - Cardiac arrest [Fatal]
  - Respiratory depression [Fatal]
  - Drug interaction [Fatal]
